FAERS Safety Report 14480251 (Version 1)
Quarter: 2018Q1

REPORT INFORMATION
  Report Type: Spontaneous
  Country: US (occurrence: US)
  Receive Date: 20180201
  Receipt Date: 20180201
  Transmission Date: 20180509
  Serious: No
  Sender: FDA-Public Use
  Company Number: None

PATIENT
  Age: 73 Year
  Sex: Female

DRUGS (2)
  1. ENOXAPARIN [Suspect]
     Active Substance: ENOXAPARIN
     Indication: DEEP VEIN THROMBOSIS
  2. WARFARIN [Suspect]
     Active Substance: WARFARIN
     Indication: DEEP VEIN THROMBOSIS

REACTIONS (6)
  - Pulseless electrical activity [None]
  - Abdominal wall haematoma [None]
  - Hypotension [None]
  - Haemoglobin decreased [None]
  - Haematoma [None]
  - International normalised ratio decreased [None]

NARRATIVE: CASE EVENT DATE: 20170222
